FAERS Safety Report 4581985-X (Version None)
Quarter: 2005Q1

REPORT INFORMATION
  Report Type: 
  Country: None (occurrence: None)
  Receive Date: 20050119
  Receipt Date: 20040903
  Transmission Date: 20050727
  Serious: Yes (Other)
  Sender: FDA-Public Use
  Company Number: US-JNJFOC-20040803372

PATIENT
  Age: 74 Year
  Sex: Female
  Weight: 73.0291 kg

DRUGS (2)
  1. DOXIL [Suspect]
     Indication: OVARIAN CANCER
     Dosage: 70 MG OVER 90-120 MINUTES, X3 CYCLES
     Dates: start: 20040524, end: 20040727
  2. ANZEMET (DOLASETRON MESILATE) [Concomitant]

REACTIONS (2)
  - DERMATITIS BULLOUS [None]
  - PALMAR-PLANTAR ERYTHRODYSAESTHESIA SYNDROME [None]
